FAERS Safety Report 25134860 (Version 1)
Quarter: 2025Q1

REPORT INFORMATION
  Report Type: Spontaneous
  Country: US (occurrence: US)
  Receive Date: 20250328
  Receipt Date: 20250328
  Transmission Date: 20250409
  Serious: No
  Sender: EISAI
  Company Number: US-Eisai-EC-2025-186118

PATIENT
  Sex: Male

DRUGS (1)
  1. LEQEMBI [Suspect]
     Active Substance: LECANEMAB-IRMB
     Indication: Product used for unknown indication

REACTIONS (6)
  - Confusional state [Unknown]
  - Anxiety [Unknown]
  - Visual impairment [Unknown]
  - Nervousness [Unknown]
  - Insomnia [Unknown]
  - Amyloid related imaging abnormality-oedema/effusion [Unknown]
